FAERS Safety Report 21992798 (Version 1)
Quarter: 2023Q1

REPORT INFORMATION
  Report Type: Spontaneous
  Country: FR (occurrence: FR)
  Receive Date: 20230215
  Receipt Date: 20230215
  Transmission Date: 20230418
  Serious: Yes (Other)
  Sender: FDA-Public Use
  Company Number: None

PATIENT
  Age: 75 Year
  Sex: Male
  Weight: 86 kg

DRUGS (12)
  1. RITUXIMAB [Suspect]
     Active Substance: RITUXIMAB
     Indication: Marginal zone lymphoma
     Dosage: 800 MG A 4H
     Route: 065
     Dates: start: 20230112, end: 20230112
  2. ARANESP [Concomitant]
     Active Substance: DARBEPOETIN ALFA
  3. ONDANSETRON [Concomitant]
     Active Substance: ONDANSETRON
  4. VINCRISTINE SULFATE [Concomitant]
     Active Substance: VINCRISTINE SULFATE
  5. ELIQUIS [Concomitant]
     Active Substance: APIXABAN
  6. FILGRASTIM [Concomitant]
     Active Substance: FILGRASTIM
  7. TRANSIPEG [Concomitant]
  8. PREDNISONE [Concomitant]
     Active Substance: PREDNISONE
  9. CYCLOPHOSPHAMIDE [Concomitant]
     Active Substance: CYCLOPHOSPHAMIDE
  10. VALACYCLOVIR HYDROCHLORIDE [Concomitant]
     Active Substance: VALACYCLOVIR HYDROCHLORIDE
  11. BACTRIM [Concomitant]
     Active Substance: SULFAMETHOXAZOLE\TRIMETHOPRIM
  12. NOVORAPID [Concomitant]
     Active Substance: INSULIN ASPART

REACTIONS (5)
  - Back pain [Recovered/Resolved]
  - Nystagmus [Recovered/Resolved]
  - Dysmetria [Recovered/Resolved]
  - Infusion related reaction [Recovered/Resolved]
  - Vertigo [Recovered/Resolved]

NARRATIVE: CASE EVENT DATE: 20230112
